FAERS Safety Report 21993876 (Version 8)
Quarter: 2023Q2

REPORT INFORMATION
  Report Type: Spontaneous
  Country: US (occurrence: US)
  Receive Date: 20230215
  Receipt Date: 20230628
  Transmission Date: 20230722
  Serious: No
  Sender: FDA-Public Use
  Company Number: US-GLAXOSMITHKLINE-US2023AMR020958

PATIENT
  Sex: Female

DRUGS (2)
  1. ZEJULA [Suspect]
     Active Substance: NIRAPARIB
     Indication: Ovarian cancer
     Dosage: 300 MG, QD
  2. ZEJULA [Suspect]
     Active Substance: NIRAPARIB
     Dosage: 200 MG, QD

REACTIONS (21)
  - Tachycardia [Not Recovered/Not Resolved]
  - Pain [Unknown]
  - Headache [Unknown]
  - Blood pressure increased [Not Recovered/Not Resolved]
  - Paraesthesia [Recovering/Resolving]
  - Insomnia [Unknown]
  - Nausea [Unknown]
  - Heart rate increased [Not Recovered/Not Resolved]
  - Hypertension [Unknown]
  - Anaemia macrocytic [Unknown]
  - Pain in extremity [Unknown]
  - Fatigue [Unknown]
  - Illness [Unknown]
  - Back pain [Unknown]
  - Condition aggravated [Unknown]
  - Myalgia [Unknown]
  - Ligament pain [Unknown]
  - Brain fog [Unknown]
  - Red blood cell count decreased [Unknown]
  - Red blood cell abnormality [Unknown]
  - Product use issue [Unknown]
